FAERS Safety Report 25866175 (Version 1)
Quarter: 2025Q3

REPORT INFORMATION
  Report Type: Spontaneous
  Country: EU (occurrence: EU)
  Receive Date: 20250930
  Receipt Date: 20250930
  Transmission Date: 20251021
  Serious: Yes (Death, Other)
  Sender: NOVARTIS
  Company Number: EU-UCBSA-2025058039

PATIENT
  Age: 66 Year
  Sex: Male

DRUGS (2)
  1. TRILEPTAL [Suspect]
     Active Substance: OXCARBAZEPINE
     Indication: Generalised tonic-clonic seizure
     Dosage: 300 MILLIGRAM, 2X/DAY BID (600 MG, QD)
     Route: 065
  2. LEVETIRACETAM [Suspect]
     Active Substance: LEVETIRACETAM
     Indication: Generalised tonic-clonic seizure
     Dosage: 750 MG, BID (1500 MG, QD, UCB)
     Route: 065
     Dates: end: 20250215

REACTIONS (6)
  - Completed suicide [Fatal]
  - Sleep disorder [Unknown]
  - Hypertension [Unknown]
  - Heart rate increased [Unknown]
  - Burnout syndrome [Unknown]
  - Head discomfort [Unknown]

NARRATIVE: CASE EVENT DATE: 20241201
